FAERS Safety Report 11200034 (Version 1)
Quarter: 2015Q2

REPORT INFORMATION
  Report Type: Spontaneous
  Country: IT (occurrence: IT)
  Receive Date: 20150618
  Receipt Date: 20150618
  Transmission Date: 20150821
  Serious: Yes (Hospitalization)
  Sender: FDA-Public Use
  Company Number: US-ASTRAZENECA-2015SE59786

PATIENT
  Age: 59 Year
  Sex: Female

DRUGS (2)
  1. LASIX [Concomitant]
     Active Substance: FUROSEMIDE
     Indication: ASCITES
     Dosage: 2-3 TABLE UNK
  2. BLOPRESID [Suspect]
     Active Substance: CANDESARTAN CILEXETIL\HYDROCHLOROTHIAZIDE
     Indication: ESSENTIAL HYPERTENSION
     Dosage: 32 MG/25 MG, 1 DF EVERY DAY
     Route: 048
     Dates: start: 20150605, end: 20150605

REACTIONS (4)
  - Jaundice [Recovering/Resolving]
  - Blood bilirubin increased [Recovering/Resolving]
  - Pruritus [Recovering/Resolving]
  - Transaminases increased [Recovering/Resolving]
